FAERS Safety Report 5762772-3 (Version None)
Quarter: 2008Q2

REPORT INFORMATION
  Report Type: 
  Country: None (occurrence: None)
  Receive Date: 20080604
  Receipt Date: 20080526
  Transmission Date: 20081010
  Serious: Yes (Hospitalization)
  Sender: FDA-Public Use
  Company Number: 2007JP005766

PATIENT
  Age: 57 Year
  Sex: Female
  Weight: 49.8 kg

DRUGS (18)
  1. TACROLIMUS [Suspect]
     Indication: RHEUMATOID ARTHRITIS
     Dosage: 3 MG, /D, ORAL
     Route: 048
     Dates: start: 20070521, end: 20071225
  2. RHEUMATREX [Concomitant]
  3. ETODOLAC [Concomitant]
  4. FOLIAMIN (FOLIC ACID) TABLET [Concomitant]
  5. OLMETEC (OLMESARTAN MEDOXOMIL) TABLET [Concomitant]
  6. GASTER POWDER [Concomitant]
  7. MARZULENE S (LEVOGLUTAMIDE, SODIUM GUALENATE) GRANULE [Concomitant]
  8. SELBEX (TEPRENONE) FINE GRANULE [Concomitant]
  9. NORVASC [Concomitant]
  10. MOHRUS (KETOPROFEN) TAPE [Concomitant]
  11. MALENTOL INJECTION [Concomitant]
  12. IOMERON (IOMEPROL) INJECTION [Concomitant]
  13. XYLOCAINE (LIDOCAINE) INJECTION [Concomitant]
  14. CEFAMEZIN (CEFAZOLIN) INJECTION [Concomitant]
  15. PHYSIO (GLUCOSE, MAGNESIUM CHLORIDE ANHYDROUS, POTASSIUM PHOSPHATE MON [Concomitant]
  16. LACTEC (SODIUM LACTATE, SODIUM CHLORIDE, CALCIUM CHLORIDE ANHYDROUS, P [Concomitant]
  17. VAGOSTIGMIN (NEOSTIGMINE BROMIDE) INJECTION [Concomitant]
  18. ATROPINE SULFATE (ATROPINE SULFATE) INJECTION [Concomitant]

REACTIONS (8)
  - ANEURYSM [None]
  - BLOOD PRESSURE INCREASED [None]
  - DISORIENTATION [None]
  - HYPERTENSION [None]
  - MUSCULAR WEAKNESS [None]
  - NAUSEA [None]
  - RESTLESSNESS [None]
  - SUBARACHNOID HAEMORRHAGE [None]
